FAERS Safety Report 6254459-8 (Version None)
Quarter: 2009Q3

REPORT INFORMATION
  Report Type: 
  Country: None (occurrence: None)
  Receive Date: 20090701
  Receipt Date: 20090701
  Transmission Date: 20100115
  Serious: Yes (Other)
  Sender: FDA-Public Use
  Company Number: None

PATIENT
  Age: 7 Year
  Sex: Male
  Weight: 43.0917 kg

DRUGS (3)
  1. SINGULAIR [Suspect]
     Indication: ASTHMA
     Dosage: 1 TABLET NIGHTLY PO
     Route: 048
     Dates: start: 20080501, end: 20081010
  2. SINGULAIR [Suspect]
     Indication: HYPERSENSITIVITY
     Dosage: 1 TABLET NIGHTLY PO
     Route: 048
     Dates: start: 20080501, end: 20081010
  3. SINGULAIR [Suspect]

REACTIONS (5)
  - DEPRESSION [None]
  - EDUCATIONAL PROBLEM [None]
  - FATIGUE [None]
  - MOOD SWINGS [None]
  - SOMNOLENCE [None]
